FAERS Safety Report 4726386-6 (Version None)
Quarter: 2005Q3

REPORT INFORMATION
  Report Type: 
  Country: None (occurrence: None)
  Receive Date: 20050725
  Receipt Date: 20050712
  Transmission Date: 20060218
  Serious: Yes (Hospitalization)
  Sender: FDA-Public Use
  Company Number: 2005BI002335

PATIENT
  Age: 46 Year
  Sex: Female
  Weight: 52.1637 kg

DRUGS (7)
  1. AVONEX [Suspect]
     Indication: MULTIPLE SCLEROSIS
     Dosage: 30 UG; QW; IM
     Route: 030
     Dates: start: 19960101, end: 20030801
  2. REBIF [Concomitant]
  3. IBUPROFEN [Concomitant]
  4. CALCIUM AND VITAMIN D [Concomitant]
  5. VITAMIN D AND E [Concomitant]
  6. METHYLPREDNISOLONE 16MG TAB [Concomitant]
  7. TRIAMTERENE AND HYDROCHLOROTHIAZIDE [Concomitant]

REACTIONS (3)
  - METASTASES TO LYMPH NODES [None]
  - NAEVUS CELL NAEVUS [None]
  - PAPILLARY THYROID CANCER [None]
